FAERS Safety Report 9057565 (Version 1)
Quarter: 2013Q1

REPORT INFORMATION
  Report Type: Spontaneous
  Country: US (occurrence: None)
  Receive Date: 20130204
  Receipt Date: 20130204
  Transmission Date: 20140127
  Serious: Yes (Hospitalization)
  Sender: FDA-Public Use
  Company Number: None

PATIENT
  Age: 89 Year
  Sex: Male
  Weight: 73 kg

DRUGS (16)
  1. COUMADIN [Suspect]
     Indication: ATRIAL FIBRILLATION
     Dosage: CHRONIC
     Route: 048
  2. ASPIRIN [Suspect]
     Indication: CORONARY ARTERY DISEASE
     Dosage: CHRONIC
     Route: 048
  3. METOPROLOL [Concomitant]
  4. COLACE [Concomitant]
  5. TRAZODONE [Concomitant]
  6. SEROQUEL [Concomitant]
  7. SODIUM PHOSPHATE [Concomitant]
  8. NORCO [Concomitant]
  9. PRAVASTATIN [Concomitant]
  10. ANUSOL [Concomitant]
  11. MVI [Concomitant]
  12. MIRALAX [Concomitant]
  13. MELATONIN [Concomitant]
  14. FLUOXETIN [Concomitant]
  15. FLEETS [Concomitant]
  16. TYLENOL [Concomitant]

REACTIONS (3)
  - Gastrointestinal haemorrhage [None]
  - Haemorrhoidal haemorrhage [None]
  - Atrial fibrillation [None]
